FAERS Safety Report 6041719-9 (Version None)
Quarter: 2009Q1

REPORT INFORMATION
  Report Type: 
  Country: None (occurrence: None)
  Receive Date: 20090116
  Receipt Date: 20090108
  Transmission Date: 20090719
  Serious: Yes (Other)
  Sender: FDA-Public Use
  Company Number: NZ-ELI_LILLY_AND_COMPANY-NZ200812003832

PATIENT
  Sex: Male

DRUGS (6)
  1. HUMALOG [Suspect]
     Dosage: 10 IU, 2/D
     Dates: start: 20081201
  2. HUMALOG MIX 75/25 [Suspect]
     Dosage: 10 IU, 2/D
     Dates: start: 20081127
  3. METFORMIN [Concomitant]
     Dosage: 850 MG, UNK
  4. LIPEX [Concomitant]
     Dosage: 40 MG, UNK
  5. ATACAND [Concomitant]
     Dosage: 4 MG, UNK
  6. BETALOC [Concomitant]
     Dosage: 47.5 MG, UNK

REACTIONS (2)
  - DIABETES MELLITUS INADEQUATE CONTROL [None]
  - DRUG DISPENSING ERROR [None]
